FAERS Safety Report 10938925 (Version 2)
Quarter: 2015Q2

REPORT INFORMATION
  Report Type: Spontaneous
  Country: US (occurrence: US)
  Receive Date: 20150321
  Receipt Date: 20150525
  Transmission Date: 20150821
  Serious: No
  Sender: FDA-Public Use
  Company Number: US-JNJFOC-20140603173

PATIENT
  Sex: Female

DRUGS (5)
  1. TOPAMAX [Suspect]
     Active Substance: TOPIRAMATE
     Indication: BIPOLAR DISORDER
     Dosage: EITHER 50 MG OR 100 MG
     Route: 048
     Dates: start: 2013, end: 2014
  2. TOPAMAX [Suspect]
     Active Substance: TOPIRAMATE
     Indication: BIPOLAR DISORDER
     Route: 048
     Dates: start: 2012, end: 2013
  3. TOPAMAX [Suspect]
     Active Substance: TOPIRAMATE
     Indication: BIPOLAR DISORDER
     Route: 048
     Dates: start: 2014
  4. SEROQUEL [Concomitant]
     Active Substance: QUETIAPINE FUMARATE
     Indication: BIPOLAR DISORDER
     Route: 065
     Dates: start: 2013
  5. SEROQUEL [Concomitant]
     Active Substance: QUETIAPINE FUMARATE
     Indication: BIPOLAR DISORDER
     Route: 065
     Dates: end: 2013

REACTIONS (3)
  - Alopecia [Not Recovered/Not Resolved]
  - Educational problem [Unknown]
  - Product use issue [Unknown]

NARRATIVE: CASE EVENT DATE: 2012
